FAERS Safety Report 4751000-3 (Version None)
Quarter: 2005Q3

REPORT INFORMATION
  Report Type: 
  Country: None (occurrence: None)
  Receive Date: 20050822
  Receipt Date: 20050811
  Transmission Date: 20060218
  Serious: Yes (Other)
  Sender: FDA-Public Use
  Company Number: 2005115299

PATIENT
  Age: 50 Year
  Sex: Male
  Weight: 99.7913 kg

DRUGS (15)
  1. ZOLOFT [Suspect]
     Indication: PANIC REACTION
     Dosage: 100 MG (100 MG, 1 IN 1 D),
     Dates: start: 19950101
  2. XANAX [Suspect]
     Indication: PANIC REACTION
     Dates: start: 19950101
  3. COATED ASPIRIN (ACETYLSALICYLIC ACID) [Concomitant]
  4. THEOPHYLLINE [Concomitant]
  5. LIPITOR [Concomitant]
  6. ZESTRIL [Concomitant]
  7. THEO-DUR [Concomitant]
  8. AVANDIA [Concomitant]
  9. TENORMIN [Concomitant]
  10. ZETIA [Concomitant]
  11. COMBIVENT [Concomitant]
  12. PROVENTIL [Concomitant]
  13. NITROGLYCERIN [Concomitant]
  14. PREVACID [Concomitant]
  15. LOPID [Concomitant]

REACTIONS (3)
  - ASTHENIA [None]
  - CAROTID ARTERY OCCLUSION [None]
  - LUNG DISORDER [None]
